FAERS Safety Report 4875795-3 (Version None)
Quarter: 2006Q1

REPORT INFORMATION
  Report Type: 
  Country: None (occurrence: None)
  Receive Date: 20060106
  Receipt Date: 20051228
  Transmission Date: 20060701
  Serious: Yes (Hospitalization)
  Sender: FDA-Public Use
  Company Number: 2005BI021562

PATIENT
  Age: 37 Year
  Sex: Male
  Weight: 99.7913 kg

DRUGS (1)
  1. AVONEX [Suspect]
     Indication: RELAPSING-REMITTING MULTIPLE SCLEROSIS
     Dosage: 30 UG QW IM
     Route: 030
     Dates: start: 19990101

REACTIONS (4)
  - ACCIDENT AT WORK [None]
  - LUMBAR VERTEBRAL FRACTURE [None]
  - RELAPSING-REMITTING MULTIPLE SCLEROSIS [None]
  - THORACIC VERTEBRAL FRACTURE [None]
